FAERS Safety Report 9018469 (Version 1)
Quarter: 2013Q1

REPORT INFORMATION
  Report Type: Spontaneous
  Country: US (occurrence: US)
  Receive Date: 20130118
  Receipt Date: 20130118
  Transmission Date: 20140127
  Serious: Yes (Other)
  Sender: FDA-Public Use
  Company Number: US-PFIZER INC-2013022413

PATIENT
  Age: 41 Year
  Sex: Female
  Weight: 56.69 kg

DRUGS (4)
  1. CHANTIX [Suspect]
     Indication: SMOKING CESSATION THERAPY
     Dosage: UNK
     Route: 048
  2. SOMA [Concomitant]
     Indication: FIBROMYALGIA
     Dosage: 350 MG, UNK
  3. LORAZEPAM [Concomitant]
     Dosage: 1 MG, 3X/DAY
  4. OXYCODONE [Concomitant]
     Dosage: UNK

REACTIONS (7)
  - Suicidal ideation [Recovered/Resolved]
  - Psychotic disorder [Recovered/Resolved]
  - Hallucination [Recovered/Resolved]
  - Constipation [Recovered/Resolved]
  - Insomnia [Recovered/Resolved]
  - Abnormal dreams [Recovered/Resolved]
  - Nightmare [Recovered/Resolved]
